FAERS Safety Report 8400096-6 (Version None)
Quarter: 2012Q2

REPORT INFORMATION
  Report Type: 
  Country: None (occurrence: None)
  Receive Date: 20120531
  Receipt Date: 20120523
  Transmission Date: 20120825
  Serious: Yes (Hospitalization, Other)
  Sender: FDA-Public Use
  Company Number: FR-PFIZER INC-2012124754

PATIENT
  Age: 56 Year
  Sex: Female

DRUGS (23)
  1. TRAMADOL HCL [Suspect]
     Dosage: UNK
     Route: 048
     Dates: start: 20120330, end: 20120402
  2. MICARDIS [Concomitant]
     Dosage: 1 DF, 1X/DAY
  3. OXYNORM [Concomitant]
     Dosage: 20 MG, AS NEEDED
     Dates: start: 20111228
  4. PREDNISOLONE [Concomitant]
     Dosage: UNK
     Dates: start: 20111201
  5. LYRICA [Suspect]
     Dosage: 50 MG, UNK
     Route: 048
     Dates: start: 20120331, end: 20120403
  6. CIPROFLOXACIN HYDROCHLORIDE [Suspect]
     Dosage: UNK
     Route: 042
     Dates: start: 20120328, end: 20120402
  7. KEPPRA [Concomitant]
     Dosage: UNK
     Dates: start: 20111201
  8. DIAMICRON [Concomitant]
     Dosage: 2 DF, DAILY
  9. CLONAZEPAM [Concomitant]
     Dosage: 0.5 VIAL THRICE DAILY
  10. LYRICA [Suspect]
     Dosage: 125 MG, UNK
     Route: 048
     Dates: start: 20120330, end: 20120330
  11. IMOVANE [Concomitant]
     Dosage: 1 DF, 1X/DAY
  12. CLONAZEPAM [Concomitant]
     Dosage: UNK
     Dates: end: 20120228
  13. LEXOMIL [Concomitant]
     Dosage: UNK
  14. OXYCONTIN [Concomitant]
     Dosage: 120 MG, 2X/DAY
     Dates: start: 20120131
  15. CITALOPRAM HYDROBROMIDE [Concomitant]
     Dosage: UNK
  16. LYRICA [Suspect]
     Indication: PAIN
     Dosage: 25 MG, 2X/DAY
     Route: 048
     Dates: start: 20120313, end: 20120320
  17. OXYCONTIN [Concomitant]
     Indication: PAIN
     Dosage: INCREASED DOSES
     Dates: start: 20111201
  18. TAXOL [Concomitant]
     Dosage: WEEKLY
     Dates: start: 20110914
  19. LYRICA [Suspect]
     Dosage: 150 MG, 2X/DAY
     Route: 048
     Dates: start: 20120321, end: 20120328
  20. LYRICA [Suspect]
     Dosage: 150 + 125 MG UNK
     Route: 048
     Dates: start: 20120329, end: 20120329
  21. EZETIMIBE [Concomitant]
     Dosage: 1 DF, 1X/DAY
  22. NEXIUM [Concomitant]
     Dosage: UNK
     Dates: start: 20111201
  23. RELPAX [Concomitant]
     Dosage: REGULAR PRESCRIPTION OF 1 BOX OF 10 TABLETS EVERY 3 MONTHS

REACTIONS (1)
  - POSTERIOR REVERSIBLE ENCEPHALOPATHY SYNDROME [None]
